FAERS Safety Report 8948332 (Version 1)
Quarter: 2012Q4

REPORT INFORMATION
  Report Type: Spontaneous
  Country: FR (occurrence: None)
  Receive Date: 20121126
  Receipt Date: 20121126
  Transmission Date: 20130627
  Serious: Yes (Hospitalization)
  Sender: FDA-Public Use
  Company Number: 2012FR0381

PATIENT
  Age: 37 Year
  Sex: Female

DRUGS (9)
  1. KINERET [Suspect]
     Dosage: 0.2857  Dosage  forms  (2 Dosage forms,  1 in 1 wk)
Subcutaneous
     Route: 058
     Dates: start: 20120912, end: 20121010
  2. TAMOXIFENE (TAMOXIFEN) [Concomitant]
  3. INEXIUM (ESOMEPRAZOLE) [Concomitant]
  4. CORTANCYL (PREDNISONE) [Concomitant]
  5. CACIT VITAMIN D3 (CALCIUM CARBONATE) [Concomitant]
  6. LYRICA (PREGABALINE) [Concomitant]
  7. ROWASA (MESALAZINE) [Concomitant]
  8. BEDELIX (MONTMORILLONITE BEIDELLITIQUE) [Concomitant]
  9. METEOXANE (SIMETICONE) [Concomitant]

REACTIONS (2)
  - Abdominal pain [None]
  - Diarrhoea [None]
